FAERS Safety Report 17863487 (Version 1)
Quarter: 2020Q2

REPORT INFORMATION
  Report Type: Spontaneous
  Country: GB (occurrence: GB)
  Receive Date: 20200604
  Receipt Date: 20200604
  Transmission Date: 20200714
  Serious: Yes (Other)
  Sender: FDA-Public Use
  Company Number: NVSC2020GB152506

PATIENT
  Age: 55 Year
  Sex: Female
  Weight: 64 kg

DRUGS (7)
  1. NAPROXEN. [Concomitant]
     Active Substance: NAPROXEN
     Indication: PRODUCT USED FOR UNKNOWN INDICATION
     Dosage: 1000 MG, QD, WITH FOOD
     Route: 065
     Dates: start: 20200220
  2. LANSOPRAZOLE. [Concomitant]
     Active Substance: LANSOPRAZOLE
     Indication: PRODUCT USED FOR UNKNOWN INDICATION
     Dosage: 15 MG, QD, EVERY MORNING, 30 MINUTES BEFORE FOOD
     Route: 065
     Dates: start: 20200220
  3. HYOSCINE BUTYLBROMIDE [Concomitant]
     Active Substance: BUTYLSCOPOLAMINE BROMIDE
     Indication: PRODUCT USED FOR UNKNOWN INDICATION
     Dosage: 20 MG,  WHEN REQUIRED MAX 8 TABLETS A DAY
     Route: 065
     Dates: start: 20200316
  4. PROPRANOLOL [Concomitant]
     Active Substance: PROPRANOLOL HYDROCHLORIDE
     Indication: ANXIETY
     Dosage: 10 MG, QID (FOUR TIMES A DAY)
     Route: 065
     Dates: start: 20200318
  5. ACIDEX [Concomitant]
     Active Substance: CALCIUM CARBONATE\SODIUM ALGINATE\SODIUM BICARBONATE
     Indication: PRODUCT USED FOR UNKNOWN INDICATION
     Dosage: 30 ML, QD, 20 MINUTES AFTER FOOD AND AT NIGHT
     Route: 065
     Dates: start: 20200318
  6. CLARITHROMYCIN. [Suspect]
     Active Substance: CLARITHROMYCIN
     Indication: OROPHARYNGEAL PAIN
     Dosage: 2 DF, QD, 500MG OR 250MG
     Route: 048
     Dates: start: 20200320, end: 20200322
  7. LAXIDO [Concomitant]
     Active Substance: POLYETHYLENE GLYCOL 3350\POTASSIUM CHLORIDE\SODIUM BICARBONATE\SODIUM CHLORIDE
     Indication: PRODUCT USED FOR UNKNOWN INDICATION
     Dosage: 3-4 SACHETS OVER 3 HOURS AND THEN 1 TWICE DAILY LONGER TERM
     Route: 065
     Dates: start: 20200318

REACTIONS (2)
  - Erythema [Recovering/Resolving]
  - Swelling face [Unknown]
